FAERS Safety Report 16610051 (Version 1)
Quarter: 2019Q3

REPORT INFORMATION
  Report Type: Spontaneous
  Country: US (occurrence: US)
  Receive Date: 20190722
  Receipt Date: 20190722
  Transmission Date: 20191004
  Serious: No
  Sender: FDA-Public Use
  Company Number: US-GLAXOSMITHKLINE-US2019131525

PATIENT
  Age: 70 Year
  Sex: Female

DRUGS (1)
  1. FLONASE ALLERGY RELIEF [Suspect]
     Active Substance: FLUTICASONE PROPIONATE
     Indication: ERYTHEMA
     Dosage: UNK,( I DO TAKE A SINGULAR EVERY NIGHT )

REACTIONS (2)
  - Product use in unapproved indication [Unknown]
  - Off label use [Unknown]
